FAERS Safety Report 22600122 (Version 1)
Quarter: 2023Q2

REPORT INFORMATION
  Report Type: Spontaneous
  Country: GB (occurrence: GB)
  Receive Date: 20230614
  Receipt Date: 20230614
  Transmission Date: 20230722
  Serious: Yes (Other)
  Sender: FDA-Public Use
  Company Number: GB-MHRA-MED-202306091341211390-TCRDG

PATIENT
  Age: 51 Year
  Sex: Female

DRUGS (1)
  1. FLUCONAZOLE [Suspect]
     Active Substance: FLUCONAZOLE
     Indication: Vulvovaginal candidiasis
     Dates: start: 20230529

REACTIONS (6)
  - Mouth ulceration [Recovered/Resolved]
  - Tongue ulceration [Unknown]
  - Pain [Unknown]
  - Feeding disorder [Unknown]
  - Speech disorder [Unknown]
  - Gingival pain [Unknown]

NARRATIVE: CASE EVENT DATE: 20230601
